FAERS Safety Report 21286824 (Version 2)
Quarter: 2023Q1

REPORT INFORMATION
  Report Type: Spontaneous
  Country: AU (occurrence: AU)
  Receive Date: 20220902
  Receipt Date: 20230103
  Transmission Date: 20230417
  Serious: Yes (Hospitalization, Other)
  Sender: FDA-Public Use
  Company Number: AU-MYLANLABS-2022M1090733

PATIENT
  Age: 72 Year
  Sex: Female
  Weight: 75 kg

DRUGS (14)
  1. METHOTREXATE [Suspect]
     Active Substance: METHOTREXATE
     Indication: VEXAS syndrome
     Dosage: 25 MILLIGRAM
     Route: 065
     Dates: start: 2015
  2. METHOTREXATE [Suspect]
     Active Substance: METHOTREXATE
     Dosage: 10 MILLIGRAM
     Route: 065
     Dates: start: 2017
  3. METHOTREXATE [Suspect]
     Active Substance: METHOTREXATE
     Dosage: 7.5 MILLIGRAM, QW
     Route: 065
  4. ADALIMUMAB [Suspect]
     Active Substance: ADALIMUMAB
     Indication: VEXAS syndrome
     Dosage: 40 MILLIGRAM
     Route: 058
     Dates: start: 2017, end: 2018
  5. AZATHIOPRINE [Suspect]
     Active Substance: AZATHIOPRINE
     Indication: VEXAS syndrome
     Dosage: UNK
     Route: 065
     Dates: start: 2016, end: 2018
  6. ETANERCEPT [Suspect]
     Active Substance: ETANERCEPT
     Indication: VEXAS syndrome
     Dosage: UNK
     Route: 065
     Dates: start: 2017, end: 2018
  7. SULFAMETHOXAZOLE\TRIMETHOPRIM [Suspect]
     Active Substance: SULFAMETHOXAZOLE\TRIMETHOPRIM
     Indication: Nocardiosis
     Dosage: UNK
     Route: 065
  8. CYCLOSPORINE [Suspect]
     Active Substance: CYCLOSPORINE
     Indication: VEXAS syndrome
     Dosage: UNK
     Route: 065
     Dates: start: 2016
  9. GOLIMUMAB [Suspect]
     Active Substance: GOLIMUMAB
     Indication: VEXAS syndrome
     Dosage: UNK
     Route: 065
     Dates: start: 2017
  10. LEFLUNOMIDE [Concomitant]
     Active Substance: LEFLUNOMIDE
     Indication: VEXAS syndrome
     Dosage: UNK
     Route: 065
     Dates: start: 2018
  11. PREDNISOLONE [Concomitant]
     Active Substance: PREDNISOLONE
     Indication: VEXAS syndrome
     Dosage: 15 MILLIGRAM, QD
     Route: 065
     Dates: start: 2014
  12. PREDNISOLONE [Concomitant]
     Active Substance: PREDNISOLONE
     Dosage: 5 MILLIGRAM
     Route: 065
     Dates: start: 2019
  13. PREDNISOLONE [Concomitant]
     Active Substance: PREDNISOLONE
     Dosage: 3 MILLIGRAM
     Route: 065
     Dates: start: 2021
  14. ABATACEPT [Concomitant]
     Active Substance: ABATACEPT
     Indication: VEXAS syndrome
     Dosage: 125 MILLIGRAM, QW
     Route: 058
     Dates: start: 201903

REACTIONS (5)
  - Drug ineffective [Unknown]
  - Rash [Recovered/Resolved]
  - Cytopenia [Unknown]
  - Injection site reaction [Recovered/Resolved]
  - Off label use [Unknown]
